FAERS Safety Report 6220494-9 (Version None)
Quarter: 2009Q2

REPORT INFORMATION
  Report Type: 
  Country: None (occurrence: None)
  Receive Date: 20090604
  Receipt Date: 20090522
  Transmission Date: 20091009
  Serious: Yes (Other)
  Sender: FDA-Public Use
  Company Number: US-WYE-H09445909

PATIENT
  Age: 57 Year
  Sex: Female
  Weight: 68.1 kg

DRUGS (8)
  1. PREMPRO (CONJUGATED ESTROGENS/ MEDROXYPROGESTERONE ACETATE, TABLET, UN [Suspect]
     Indication: MENOPAUSE
     Dosage: WAS ON LOW DOSE DAILY, LOWERED TO EVERY OTHER DAY AND THEN WENT OFF COMPLETELY
  2. CELEBREX [Suspect]
     Indication: FIBROMYALGIA
     Dosage: 200 MG 1X PER 1 DAY
     Dates: start: 20080101
  3. CELEBREX [Suspect]
     Indication: OSTEOARTHRITIS
     Dosage: 200 MG 1X PER 1 DAY
     Dates: start: 20080101
  4. CRESTOR [Suspect]
     Indication: BLOOD CHOLESTEROL INCREASED
  5. LIPITOR [Suspect]
     Indication: BLOOD CHOLESTEROL INCREASED
     Dosage: 40 MG 1X PER 1 DAY
     Dates: start: 20060101
  6. PREMARIN [Suspect]
     Indication: MENOPAUSE
     Dosage: VAGINAL
     Route: 067
  7. PREMARIN [Suspect]
     Indication: MENOPAUSE
  8. SYNTHROID [Concomitant]

REACTIONS (16)
  - ARTHRALGIA [None]
  - BREAST CYST [None]
  - BREAST DISORDER [None]
  - CRYING [None]
  - DRUG WITHDRAWAL SYNDROME [None]
  - DRY EYE [None]
  - FATIGUE [None]
  - GALLBLADDER NON-FUNCTIONING [None]
  - HIATUS HERNIA [None]
  - HOT FLUSH [None]
  - MALAISE [None]
  - MOOD SWINGS [None]
  - MUSCLE TIGHTNESS [None]
  - NERVOUS SYSTEM DISORDER [None]
  - VAGINAL LACERATION [None]
  - WEIGHT INCREASED [None]
